FAERS Safety Report 9503667 (Version 1)
Quarter: 2013Q3

REPORT INFORMATION
  Report Type: Spontaneous
  Country: CA (occurrence: CA)
  Receive Date: 20130906
  Receipt Date: 20130906
  Transmission Date: 20140515
  Serious: Yes (Hospitalization, Other)
  Sender: FDA-Public Use
  Company Number: PHHY2013CA095459

PATIENT
  Age: 29 Year
  Sex: Female

DRUGS (1)
  1. BUPROPION [Suspect]
     Dosage: 1200 MG, DAILY (DISSOLVED IN WATER AND INJECTED EVERY 2-3 HOURS)
     Route: 042

REACTIONS (7)
  - Irritability [Unknown]
  - Affect lability [Unknown]
  - Depressed mood [Unknown]
  - Incorrect route of drug administration [Unknown]
  - Drug dependence [Unknown]
  - Drug abuse [Unknown]
  - Intentional overdose [Unknown]
